FAERS Safety Report 4562415-0 (Version None)
Quarter: 2005Q1

REPORT INFORMATION
  Report Type: 
  Country: None (occurrence: None)
  Receive Date: 20050127
  Receipt Date: 20041216
  Transmission Date: 20050727
  Serious: No
  Sender: FDA-Public Use
  Company Number: US-BRISTOL-MYERS SQUIBB COMPANY-12798351

PATIENT
  Sex: Female

DRUGS (1)
  1. KENALOG-10 [Suspect]
     Indication: DERMATITIS
     Dosage: NUMBER OF DOSES: A SERIES OF INTRALESIONAL INJECTIONS.
     Route: 026
     Dates: start: 20020401

REACTIONS (1)
  - TENDON RUPTURE [None]
